FAERS Safety Report 8161257-7 (Version None)
Quarter: 2012Q1

REPORT INFORMATION
  Report Type: 
  Country: None (occurrence: None)
  Receive Date: 20120222
  Receipt Date: 20120222
  Transmission Date: 20120608
  Serious: Yes (Disabling, Other)
  Sender: FDA-Public Use
  Company Number: None

PATIENT
  Age: 60 Year
  Sex: Male
  Weight: 72.5755 kg

DRUGS (2)
  1. CIPROFLOXACIN [Suspect]
     Indication: KIDNEY INFECTION
     Dosage: 500 MG TAB 2 PER DAY 45 DAYS
     Dates: start: 20110904, end: 20111018
  2. CIPROFLOXACIN [Suspect]
     Indication: CYSTITIS
     Dosage: 500 MG TAB 2 PER DAY 45 DAYS
     Dates: start: 20110904, end: 20111018

REACTIONS (4)
  - IRRITABLE BOWEL SYNDROME [None]
  - PROSTATIC SPECIFIC ANTIGEN INCREASED [None]
  - RENAL PAIN [None]
  - BACK PAIN [None]
